FAERS Safety Report 6534498-X (Version None)
Quarter: 2010Q1

REPORT INFORMATION
  Report Type: 
  Country: None (occurrence: None)
  Receive Date: 20100112
  Receipt Date: 20100107
  Transmission Date: 20100710
  Serious: Yes (Hospitalization, Other)
  Sender: FDA-Public Use
  Company Number: US-PFIZER INC-2009234819

PATIENT
  Sex: Male
  Weight: 81.633 kg

DRUGS (4)
  1. LYRICA [Suspect]
     Indication: NEUROPATHY PERIPHERAL
     Dosage: 75 MG, 2X/DAY
     Dates: start: 20090101
  2. LYRICA [Suspect]
     Indication: CHEST PAIN
  3. LYRICA [Suspect]
     Indication: DIABETIC NEUROPATHY
  4. LEXAPRO [Concomitant]
     Dosage: UNK

REACTIONS (10)
  - CATARACT OPERATION [None]
  - DISTURBANCE IN ATTENTION [None]
  - DRY MOUTH [None]
  - ECZEMA [None]
  - HIP SURGERY [None]
  - HYPERSENSITIVITY [None]
  - OEDEMA PERIPHERAL [None]
  - PRURITUS [None]
  - RASH [None]
  - WEIGHT INCREASED [None]
